FAERS Safety Report 14583475 (Version 1)
Quarter: 2018Q1

REPORT INFORMATION
  Report Type: Spontaneous
  Country: US (occurrence: US)
  Receive Date: 20180227
  Receipt Date: 20180227
  Transmission Date: 20180509
  Serious: No
  Sender: FDA-Public Use
  Company Number: None

PATIENT
  Age: 71 Year
  Sex: Male

DRUGS (4)
  1. TAMSULOSIN 0.4MG CAP [Concomitant]
     Dates: start: 20170825
  2. METOPROLOL SUCCINATE ER [Suspect]
     Active Substance: METOPROLOL SUCCINATE
     Route: 048
     Dates: start: 20180131, end: 20180222
  3. DUTASTERIDE 0.5MG CAP [Concomitant]
     Dates: start: 20170828
  4. ELIQUIS [Concomitant]
     Active Substance: APIXABAN
     Dates: start: 20170525

REACTIONS (1)
  - Heart rate increased [None]

NARRATIVE: CASE EVENT DATE: 20180222
